FAERS Safety Report 7298041-2 (Version None)
Quarter: 2011Q1

REPORT INFORMATION
  Report Type: 
  Country: None (occurrence: None)
  Receive Date: 20110217
  Receipt Date: 20110215
  Transmission Date: 20110831
  Serious: No
  Sender: FDA-Public Use
  Company Number: US-PFIZER INC-2011034126

PATIENT
  Sex: Female
  Weight: 73.469 kg

DRUGS (3)
  1. PRISTIQ [Suspect]
     Indication: DEPRESSION
  2. CRESTOR [Concomitant]
     Dosage: UNK
  3. PRISTIQ [Suspect]
     Indication: PAIN
     Dosage: 50 MG, 1X/DAY
     Route: 048
     Dates: end: 20110213

REACTIONS (3)
  - PAIN [None]
  - HEADACHE [None]
  - ABNORMAL DREAMS [None]
